FAERS Safety Report 13388539 (Version 2)
Quarter: 2017Q2

REPORT INFORMATION
  Report Type: Spontaneous
  Country: US (occurrence: US)
  Receive Date: 20170330
  Receipt Date: 20170421
  Transmission Date: 20170830
  Serious: No
  Sender: FDA-Public Use
  Company Number: US-009507513-1703USA005277

PATIENT
  Age: 23 Year
  Sex: Female
  Weight: 102.49 kg

DRUGS (2)
  1. IMPLANON [Suspect]
     Active Substance: ETONOGESTREL
     Indication: PRODUCT USED FOR UNKNOWN INDICATION
     Dosage: 1 DF, EVERY THREE YEARS
     Route: 059
     Dates: start: 2011
  2. HORMONAL CONTRACEPTIVES (UNSPECIFIED) [Concomitant]
     Active Substance: UNSPECIFIED INGREDIENT
     Indication: ORAL CONTRACEPTION
     Dosage: UNK UNK, UNKNOWN
     Route: 048

REACTIONS (3)
  - Complication associated with device [Not Recovered/Not Resolved]
  - Incorrect drug administration duration [Unknown]
  - Weight increased [Unknown]

NARRATIVE: CASE EVENT DATE: 2014
